FAERS Safety Report 24452313 (Version 2)
Quarter: 2025Q1

REPORT INFORMATION
  Report Type: Spontaneous
  Country: US (occurrence: US)
  Receive Date: 20241017
  Receipt Date: 20250313
  Transmission Date: 20250409
  Serious: No
  Sender: SUNOVION
  Company Number: US-UROVANT SCIENCES GMBH-202402-URV-000239

PATIENT

DRUGS (1)
  1. GEMTESA [Suspect]
     Active Substance: VIBEGRON
     Indication: Hypertonic bladder
     Route: 048
     Dates: start: 202306

REACTIONS (5)
  - Malaise [Unknown]
  - SARS-CoV-2 test positive [Unknown]
  - Drug interaction [Unknown]
  - Drug effect less than expected [Unknown]
  - Therapy interrupted [Unknown]
